FAERS Safety Report 7097555-8 (Version None)
Quarter: 2010Q4

REPORT INFORMATION
  Report Type: 
  Country: None (occurrence: None)
  Receive Date: 20101111
  Receipt Date: 20101102
  Transmission Date: 20110411
  Serious: Yes (Hospitalization)
  Sender: FDA-Public Use
  Company Number: FR-B.I. PHARMACEUTICALS,INC./RIDGEFIELD-2010-FF-00878FF

PATIENT
  Sex: Female

DRUGS (10)
  1. MOBIC [Suspect]
     Indication: BACK PAIN
     Route: 048
     Dates: start: 20100929, end: 20101005
  2. CYCLADOL [Suspect]
     Indication: BACK PAIN
     Route: 048
     Dates: start: 20100913, end: 20100929
  3. VOLTAREN [Suspect]
     Indication: BACK PAIN
     Route: 048
     Dates: start: 20100929, end: 20101005
  4. CONTRAMAL [Concomitant]
  5. NISIS [Concomitant]
     Dates: end: 20101014
  6. PARIET [Concomitant]
  7. MYOLASTAN [Concomitant]
     Dates: start: 20100929, end: 20101013
  8. RIVOTRIL [Concomitant]
     Dates: start: 20101001
  9. DAFALGAN CODEINE [Concomitant]
     Dates: start: 20101005, end: 20101012
  10. DOLIPRANE [Concomitant]
     Dates: start: 20100913, end: 20100929

REACTIONS (5)
  - BACK PAIN [None]
  - FALL [None]
  - HEPATITIS CHOLESTATIC [None]
  - INFLAMMATION [None]
  - RENAL FAILURE [None]
